FAERS Safety Report 8822276 (Version 1)
Quarter: 2012Q4

REPORT INFORMATION
  Report Type: 
  Country: EC (occurrence: EC)
  Receive Date: 20121003
  Receipt Date: 20121003
  Transmission Date: 20130627
  Serious: Yes (Hospitalization, Other)
  Sender: FDA-Public Use
  Company Number: PHHY2012EC085761

PATIENT
  Sex: Female

DRUGS (2)
  1. DIOVAN [Suspect]
     Indication: HYPERTENSION
     Dosage: 1 DF, daily, 80 mg
     Route: 048
     Dates: start: 2002
  2. ASPIRINA [Concomitant]

REACTIONS (2)
  - Brain neoplasm [Recovering/Resolving]
  - Eye disorder [Unknown]
